FAERS Safety Report 7020269-7 (Version None)
Quarter: 2010Q3

REPORT INFORMATION
  Report Type: 
  Country: None (occurrence: None)
  Receive Date: 20100927
  Receipt Date: 20100908
  Transmission Date: 20110219
  Serious: Yes (Hospitalization, Other)
  Sender: FDA-Public Use
  Company Number: 2010P1000711

PATIENT
  Age: 78 Year
  Sex: Male
  Weight: 80.7403 kg

DRUGS (13)
  1. WARFARIN SODIUM [Suspect]
     Indication: ATRIAL FIBRILLATION
     Dosage: SEE IMAGE
     Route: 048
     Dates: start: 20080201, end: 20100731
  2. WARFARIN SODIUM [Suspect]
     Indication: ATRIAL FIBRILLATION
     Dosage: SEE IMAGE
     Route: 048
     Dates: start: 20080201, end: 20100731
  3. WARFARIN SODIUM [Suspect]
     Indication: ATRIAL FIBRILLATION
     Dosage: SEE IMAGE
     Route: 048
     Dates: start: 20100804, end: 20100810
  4. WARFARIN SODIUM [Suspect]
     Indication: ATRIAL FIBRILLATION
     Dosage: SEE IMAGE
     Route: 048
     Dates: start: 20100804, end: 20100810
  5. DILTIAZEM [Concomitant]
  6. VITAMIN B-12 [Concomitant]
  7. TERAZOSIN HCL [Concomitant]
  8. PRINIVIL [Concomitant]
  9. LISINOPRIL [Concomitant]
  10. LOPRESSOR [Concomitant]
  11. DIGOXIN [Concomitant]
  12. LOVENOX [Concomitant]
  13. PREV MEDS [Concomitant]

REACTIONS (10)
  - ARTHRALGIA [None]
  - ARTHROPATHY [None]
  - BURNING SENSATION [None]
  - CARDIAC VALVE DISEASE [None]
  - DIZZINESS [None]
  - HALLUCINATION [None]
  - HEART RATE INCREASED [None]
  - JOINT EFFUSION [None]
  - TREMOR [None]
  - VISION BLURRED [None]
